FAERS Safety Report 11103718 (Version 1)
Quarter: 2015Q2

REPORT INFORMATION
  Report Type: Spontaneous
  Country: US (occurrence: None)
  Receive Date: 20150508
  Receipt Date: 20150508
  Transmission Date: 20150821
  Serious: Yes (Other)
  Sender: FDA-Public Use
  Company Number: None

PATIENT
  Age: 65 Year
  Sex: Female
  Weight: 111.13 kg

DRUGS (6)
  1. HARVONI [Suspect]
     Active Substance: LEDIPASVIR\SOFOSBUVIR
     Indication: HEPATITIS C
     Route: 048
  2. VITAMIN [Concomitant]
     Active Substance: VITAMINS
  3. TRAVATAN [Concomitant]
     Active Substance: TRAVOPROST
  4. TORSEMIDE. [Concomitant]
     Active Substance: TORSEMIDE
  5. ALEVE [Concomitant]
     Active Substance: NAPROXEN SODIUM
  6. AMLODIPINE [Concomitant]
     Active Substance: AMLODIPINE BESYLATE

REACTIONS (7)
  - Constipation [None]
  - Gait disturbance [None]
  - Headache [None]
  - Flatulence [None]
  - Faeces discoloured [None]
  - Balance disorder [None]
  - Acne [None]

NARRATIVE: CASE EVENT DATE: 20150424
